FAERS Safety Report 10488333 (Version 4)
Quarter: 2015Q2

REPORT INFORMATION
  Report Type: Spontaneous
  Country: DE (occurrence: DE)
  Receive Date: 20141002
  Receipt Date: 20150501
  Transmission Date: 20150821
  Serious: Yes (Life-Threatening)
  Sender: FDA-Public Use
  Company Number: DE-BIOGENIDEC-2014BI098363

PATIENT
  Age: 54 Year
  Sex: Female
  Weight: 67 kg

DRUGS (3)
  1. TECFIDERA [Suspect]
     Active Substance: DIMETHYL FUMARATE
     Indication: MULTIPLE SCLEROSIS
     Route: 048
     Dates: start: 20140623, end: 20140628
  2. TECFIDERA [Suspect]
     Active Substance: DIMETHYL FUMARATE
     Indication: MULTIPLE SCLEROSIS
     Route: 048
  3. MARCUMAR [Concomitant]
     Active Substance: PHENPROCOUMON
     Indication: PELVIC VENOUS THROMBOSIS
     Route: 048

REACTIONS (13)
  - International normalised ratio decreased [Unknown]
  - Alanine aminotransferase increased [Unknown]
  - Hot flush [Unknown]
  - Drug interaction [Unknown]
  - Dyspnoea [Unknown]
  - Diarrhoea [Unknown]
  - Pharyngitis [Unknown]
  - Thirst [Unknown]
  - Vasculitis [Unknown]
  - Abdominal distension [Unknown]
  - Palpitations [Unknown]
  - Thrombosis [Unknown]
  - Multiple sclerosis relapse [Unknown]

NARRATIVE: CASE EVENT DATE: 201407
